FAERS Safety Report 4816683-8 (Version None)
Quarter: 2005Q4

REPORT INFORMATION
  Report Type: 
  Country: None (occurrence: None)
  Receive Date: 20051101
  Receipt Date: 20050929
  Transmission Date: 20060501
  Serious: Yes (Hospitalization)
  Sender: FDA-Public Use
  Company Number: US-KINGPHARMUSA00001-K200501271

PATIENT
  Age: 78 Year
  Sex: Female

DRUGS (5)
  1. ALTACE [Suspect]
     Dosage: 2.5 MG, QD
     Dates: start: 20050701, end: 20050101
  2. ALTACE [Suspect]
     Dosage: 5 MG, QD
     Dates: start: 20050101
  3. ALTACE [Suspect]
     Dosage: UNK, UNK
  4. HYDROCHLOROTHIAZIDE [Suspect]
     Dosage: UNK, QD
     Dates: start: 20050701, end: 20050101
  5. HYDROCHLOROTHIAZIDE [Suspect]
     Dosage: UNK, QD
     Dates: start: 20050101

REACTIONS (5)
  - DEPRESSED LEVEL OF CONSCIOUSNESS [None]
  - DRUG INEFFECTIVE [None]
  - HYPOKALAEMIA [None]
  - MENTAL DISORDER [None]
  - ORAL INTAKE REDUCED [None]
